FAERS Safety Report 7095878 (Version 2)
Quarter: 2014Q1

REPORT INFORMATION
  Report Type: Spontaneous
  Country: US (occurrence: None)
  Receive Date: 20090817
  Receipt Date: 20140212
  Transmission Date: 20141002
  Serious: Yes (Other)
  Sender: FDA-Public Use
  Company Number: 2009S1006591

PATIENT
  Age: 61 Year
  Sex: Male
  Weight: 53.16 kg

DRUGS (3)
  1. FLEET PHOSPHO-SODA ORAL SALINE LAXATIVE, GINGER-LEMON FLAVOR (ORAL SOLUTION) [Suspect]
     Indication: PRODUCT USED FOR UNKNOWN INDICATION
     Dosage: ; PO
     Route: 048
     Dates: start: 200602
  2. REMERON [Concomitant]
  3. METOPROLOL [Concomitant]

REACTIONS (9)
  - Renal failure [None]
  - Renal failure chronic [None]
  - Nausea [None]
  - Decreased appetite [None]
  - Anaemia [None]
  - Hyperkalaemia [None]
  - Hydronephrosis [None]
  - Peritoneal dialysis [None]
  - Hyperparathyroidism secondary [None]
